FAERS Safety Report 8157318-9 (Version None)
Quarter: 2012Q1

REPORT INFORMATION
  Report Type: 
  Country: None (occurrence: None)
  Receive Date: 20120222
  Receipt Date: 20120213
  Transmission Date: 20120608
  Serious: Yes (Hospitalization)
  Sender: FDA-Public Use
  Company Number: US-ABBOTT-12P-163-0904793-00

PATIENT
  Age: 52 Year
  Sex: Female

DRUGS (4)
  1. HUMIRA [Suspect]
     Indication: CROHN'S DISEASE
     Dates: start: 20111020, end: 20120209
  2. PROMETHAZINE [Concomitant]
     Indication: NAUSEA
     Dosage: 25 MG AS NEEDED
  3. IMURAN [Concomitant]
     Indication: CROHN'S DISEASE
     Dosage: 100 MG DAILY
  4. URSODIOL [Concomitant]
     Indication: HEPATIC ENZYME INCREASED
     Dosage: 150 MG DAILY

REACTIONS (9)
  - SKIN IRRITATION [None]
  - PYREXIA [None]
  - LEUKOCYTOSIS [None]
  - SEPSIS [None]
  - STAPHYLOCOCCAL INFECTION [None]
  - SEPTIC SHOCK [None]
  - HYPOTENSION [None]
  - CELLULITIS [None]
  - SUBCUTANEOUS ABSCESS [None]
